FAERS Safety Report 8476539-9 (Version None)
Quarter: 2012Q2

REPORT INFORMATION
  Report Type: 
  Country: None (occurrence: None)
  Receive Date: 20120628
  Receipt Date: 20120622
  Transmission Date: 20120825
  Serious: Yes (Other)
  Sender: FDA-Public Use
  Company Number: US-JNJFOC-20120208838

PATIENT
  Sex: Male
  Weight: 94.35 kg

DRUGS (2)
  1. CARVEDILOL [Concomitant]
     Indication: PALPITATIONS
     Dates: start: 20120201, end: 20120214
  2. XARELTO [Suspect]
     Indication: PALPITATIONS
     Route: 048
     Dates: start: 20120201

REACTIONS (2)
  - PALPITATIONS [None]
  - BLOOD URINE PRESENT [None]
